FAERS Safety Report 14329377 (Version 4)
Quarter: 2018Q1

REPORT INFORMATION
  Report Type: Spontaneous
  Country: AU (occurrence: AU)
  Receive Date: 20171227
  Receipt Date: 20180117
  Transmission Date: 20180509
  Serious: Yes (Other)
  Sender: FDA-Public Use
  Company Number: AU-PFIZER INC-2017542513

PATIENT
  Age: 76 Year
  Sex: Male

DRUGS (2)
  1. IMMUNOGLOBULIN /07494701/ [Suspect]
     Active Substance: IMMUNE GLOBULIN NOS
     Dosage: UNK, MONTHLY
  2. CRIZOTINIB [Suspect]
     Active Substance: CRIZOTINIB
     Indication: NON-SMALL CELL LUNG CANCER
     Dosage: 250 MG, 2X/DAY

REACTIONS (2)
  - Rectal haemorrhage [Unknown]
  - Clostridium difficile colitis [Recovered/Resolved]
